FAERS Safety Report 12109828 (Version 1)
Quarter: 2016Q1

REPORT INFORMATION
  Report Type: Spontaneous
  Country: US (occurrence: None)
  Receive Date: 20160222
  Receipt Date: 20160222
  Transmission Date: 20160526
  Serious: Yes (Hospitalization)
  Sender: FDA-Public Use
  Company Number: None

PATIENT
  Age: 63 Year
  Sex: Female

DRUGS (8)
  1. LEVOFLOXACIN. [Concomitant]
     Active Substance: LEVOFLOXACIN
  2. FAMOTIDINE. [Concomitant]
     Active Substance: FAMOTIDINE
  3. AZTREONAM. [Concomitant]
     Active Substance: AZTREONAM
  4. VANCOMYCIN [Concomitant]
     Active Substance: VANCOMYCIN
  5. LEVETIRACETAM. [Concomitant]
     Active Substance: LEVETIRACETAM
  6. MANNITOL. [Concomitant]
     Active Substance: MANNITOL
  7. DEXAMETHASONE. [Concomitant]
     Active Substance: DEXAMETHASONE
  8. ENOXAPARIN [Suspect]
     Active Substance: ENOXAPARIN
     Indication: PULMONARY EMBOLISM
     Dosage: EVERY 12 HOURS
     Route: 058
     Dates: start: 20150811, end: 20150909

REACTIONS (5)
  - Haemorrhage intracranial [None]
  - Brain midline shift [None]
  - Lethargy [None]
  - Hemiparesis [None]
  - Nausea [None]

NARRATIVE: CASE EVENT DATE: 20150909
